FAERS Safety Report 6009885-9 (Version None)
Quarter: 2008Q4

REPORT INFORMATION
  Report Type: 
  Country: None (occurrence: None)
  Receive Date: 20081217
  Receipt Date: 20081211
  Transmission Date: 20090506
  Serious: Yes (Other)
  Sender: FDA-Public Use
  Company Number: US-JNJCH-2008057185

PATIENT
  Sex: Female

DRUGS (1)
  1. DESITIN CREAMY DIAPER RASH [Suspect]
     Indication: RASH
     Dosage: TEXT:UNSPECIFIED
     Route: 061

REACTIONS (2)
  - APPLICATION SITE REACTION [None]
  - RASH [None]
